FAERS Safety Report 6257213-6 (Version None)
Quarter: 2009Q3

REPORT INFORMATION
  Report Type: 
  Country: None (occurrence: None)
  Receive Date: 20090706
  Receipt Date: 20090623
  Transmission Date: 20100115
  Serious: Yes (Hospitalization, Other)
  Sender: FDA-Public Use
  Company Number: DE-ELI_LILLY_AND_COMPANY-DE200906005522

PATIENT
  Age: 45 Year
  Sex: Female

DRUGS (8)
  1. CYMBALTA [Suspect]
     Indication: DEPRESSION
     Dosage: 30 MG, UNKNOWN
     Route: 048
     Dates: start: 20081224, end: 20081229
  2. CYMBALTA [Suspect]
     Dosage: 60 MG, UNKNOWN
     Route: 048
     Dates: start: 20081230, end: 20090216
  3. CYMBALTA [Suspect]
     Dosage: 90 MG, UNKNOWN
     Route: 048
     Dates: start: 20090217, end: 20090220
  4. KATADOLON [Concomitant]
     Indication: MUSCULOSKELETAL PAIN
     Dosage: 100 MG, UNK
     Route: 048
     Dates: start: 20081217, end: 20090203
  5. MYDOCALM [Concomitant]
     Dosage: 150 MG, UNK
     Route: 048
     Dates: start: 20081224, end: 20090201
  6. MYDOCALM [Concomitant]
     Dosage: 100 MG, UNK
     Route: 048
     Dates: start: 20090202, end: 20090202
  7. MYDOCALM [Concomitant]
     Dosage: 50 MG, UNK
     Route: 048
     Dates: start: 20090203, end: 20090203
  8. OPIPRAMOL [Concomitant]
     Indication: ANALGESIA

REACTIONS (10)
  - ABDOMINAL PAIN UPPER [None]
  - ALANINE AMINOTRANSFERASE INCREASED [None]
  - ASPARTATE AMINOTRANSFERASE INCREASED [None]
  - BLOOD LACTATE DEHYDROGENASE INCREASED [None]
  - GAMMA-GLUTAMYLTRANSFERASE [None]
  - GENERAL PHYSICAL HEALTH DETERIORATION [None]
  - HAEMANGIOMA OF LIVER [None]
  - HEPATIC CYST [None]
  - HEPATIC STEATOSIS [None]
  - HEPATOTOXICITY [None]
